FAERS Safety Report 15230308 (Version 8)
Quarter: 2020Q1

REPORT INFORMATION
  Report Type: Report from Study
  Country: DE (occurrence: DE)
  Receive Date: 20180802
  Receipt Date: 20200313
  Transmission Date: 20200409
  Serious: Yes (Hospitalization, Other)
  Sender: FDA-Public Use
  Company Number: DE-BRISTOL-MYERS SQUIBB COMPANY-BMS-2018-070443

PATIENT
  Age: 67 Year
  Sex: Female

DRUGS (2)
  1. NIVOLUMAB [Suspect]
     Active Substance: NIVOLUMAB
     Indication: MALIGNANT MELANOMA
     Dosage: 44 MG, Q2WK
     Route: 042
     Dates: start: 20180514, end: 20180626
  2. IPILIMUMAB [Suspect]
     Active Substance: IPILIMUMAB
     Indication: MALIGNANT MELANOMA
     Dosage: 132 MG, Q3WK
     Route: 065
     Dates: start: 20180514, end: 20180626

REACTIONS (5)
  - Cardiac disorder [Recovered/Resolved]
  - Malignant neoplasm progression [Not Recovered/Not Resolved]
  - Hypothyroidism [Recovering/Resolving]
  - Haemophagocytic lymphohistiocytosis [Recovered/Resolved]
  - Guillain-Barre syndrome [Recovered/Resolved]

NARRATIVE: CASE EVENT DATE: 20180717
